FAERS Safety Report 7682468-0 (Version None)
Quarter: 2011Q3

REPORT INFORMATION
  Report Type: 
  Country: None (occurrence: None)
  Receive Date: 20110810
  Receipt Date: 20110729
  Transmission Date: 20111222
  Serious: Yes (Death)
  Sender: FDA-Public Use
  Company Number: DE-1186232

PATIENT
  Age: 75 Year
  Sex: Female

DRUGS (1)
  1. FLUORESCITE [Suspect]
     Indication: ANGIOGRAM
     Dosage: 4 ML OVER 10-20 SECONDS INTRAVENOUS BOLUS
     Route: 040
     Dates: start: 20110512, end: 20110512

REACTIONS (11)
  - COUGH [None]
  - CONVULSION [None]
  - CYANOSIS [None]
  - ANAPHYLACTIC SHOCK [None]
  - IATROGENIC INJURY [None]
  - LUNG DISORDER [None]
  - DYSPNOEA [None]
  - FALL [None]
  - LOSS OF CONSCIOUSNESS [None]
  - CARDIAC ARREST [None]
  - CONTRAST MEDIA ALLERGY [None]
